FAERS Safety Report 8306269-5 (Version None)
Quarter: 2012Q2

REPORT INFORMATION
  Report Type: 
  Country: None (occurrence: None)
  Receive Date: 20120423
  Receipt Date: 20120416
  Transmission Date: 20120825
  Serious: Yes (Hospitalization)
  Sender: FDA-Public Use
  Company Number: FR-PFIZER INC-2012075397

PATIENT
  Age: 55 Year
  Sex: Female

DRUGS (8)
  1. GEMZAR [Suspect]
     Indication: HODGKIN'S DISEASE
     Dosage: 1800 MG, UNK
     Route: 042
     Dates: start: 20111207, end: 20120213
  2. DACARBAZINE [Suspect]
     Indication: HODGKIN'S DISEASE
     Dosage: UNK
     Dates: start: 20110520, end: 20111101
  3. METOJECT [Suspect]
     Dosage: UNK
     Dates: start: 20120319
  4. DOXORUBICIN HCL [Suspect]
     Indication: HODGKIN'S DISEASE
     Dosage: 41 MG, DAILY
     Route: 042
     Dates: start: 20110520, end: 20120213
  5. METOJECT [Suspect]
     Indication: RHEUMATOID ARTHRITIS
     Dosage: UNK
  6. BLEOMYCIN SULFATE [Suspect]
     Indication: HODGKIN'S DISEASE
     Dosage: UNK
     Route: 042
     Dates: start: 20110520, end: 20111101
  7. VINBLASTINE SULFATE [Suspect]
     Indication: HODGKIN'S DISEASE
     Dosage: UNK
     Route: 042
     Dates: start: 20110520, end: 20111101
  8. NAVELBINE [Suspect]
     Indication: HODGKIN'S DISEASE
     Dosage: 33 MG, UNK
     Route: 042
     Dates: start: 20111207, end: 20120213

REACTIONS (3)
  - DYSPNOEA [None]
  - COUGH [None]
  - INTERSTITIAL LUNG DISEASE [None]
